FAERS Safety Report 8529748-4 (Version None)
Quarter: 2012Q3

REPORT INFORMATION
  Report Type: 
  Country: None (occurrence: None)
  Receive Date: 20120723
  Receipt Date: 20120712
  Transmission Date: 20120928
  Serious: Yes (Other)
  Sender: FDA-Public Use
  Company Number: JP-JNJFOC-20120708051

PATIENT
  Sex: Female

DRUGS (8)
  1. LORAZEPAM [Concomitant]
     Indication: INSOMNIA
     Route: 048
  2. TRAMADOL HCL [Suspect]
     Dosage: ONCE A DAY
     Route: 048
  3. DEPAS [Concomitant]
     Indication: INSOMNIA
     Route: 048
  4. CLONAZEPAM [Concomitant]
     Indication: HYPOAESTHESIA
     Route: 048
  5. UNKNOWN MEDICATION [Concomitant]
     Route: 065
  6. TRAMADOL HCL [Suspect]
     Indication: PAIN
     Dosage: TWICE A DAY FOR 2 OR 3 DAYS
     Route: 048
  7. TRAMADOL HCL [Suspect]
     Dosage: ONCE A DAY
     Route: 048
  8. NEUROTROPIN [Concomitant]
     Indication: MENIERE'S DISEASE
     Route: 065

REACTIONS (11)
  - THROAT IRRITATION [None]
  - OSTEOARTHRITIS [None]
  - HEADACHE [None]
  - BACK PAIN [None]
  - FEELING HOT [None]
  - ARTHRALGIA [None]
  - FATIGUE [None]
  - MUSCULOSKELETAL STIFFNESS [None]
  - ACTIVITIES OF DAILY LIVING IMPAIRED [None]
  - BURNING SENSATION [None]
  - ERYTHEMA [None]
